FAERS Safety Report 5786910-1 (Version None)
Quarter: 2008Q2

REPORT INFORMATION
  Report Type: 
  Country: None (occurrence: None)
  Receive Date: 20080625
  Receipt Date: 20080619
  Transmission Date: 20081010
  Serious: Yes (Death)
  Sender: FDA-Public Use
  Company Number: US-JNJFOC-20080605554

PATIENT
  Sex: Male
  Weight: 70.31 kg

DRUGS (2)
  1. PANCREASE MT [Suspect]
     Indication: CYSTIC FIBROSIS
     Route: 048
  2. IMMUNOSUPPRESSANTS [Concomitant]
     Indication: LUNG TRANSPLANT

REACTIONS (1)
  - PULMONARY EMBOLISM [None]
